FAERS Safety Report 9262900 (Version 2)
Quarter: 2013Q2

REPORT INFORMATION
  Report Type: Spontaneous
  Country: US (occurrence: US)
  Receive Date: 20130430
  Receipt Date: 20130522
  Transmission Date: 20140414
  Serious: No
  Sender: FDA-Public Use
  Company Number: US-PFIZER INC-2013134697

PATIENT
  Age: 56 Year
  Sex: Male

DRUGS (4)
  1. INLYTA [Suspect]
     Indication: RENAL CELL CARCINOMA
     Dosage: 5 MG TWICE DAILY
     Route: 048
     Dates: start: 20120530, end: 20130405
  2. OXYCODONE [Concomitant]
     Indication: PAIN
     Dosage: 15 MG EVERY 4 HRS (5MG 3 Q 4)
  3. MS CONTIN [Concomitant]
     Indication: PAIN
     Dosage: 45-30-45MG
  4. LANTUS [Concomitant]
     Indication: TYPE 2 DIABETES MELLITUS
     Dosage: 15 IU EVERY BEDTIME (Q HS)

REACTIONS (2)
  - Disease progression [Recovered/Resolved with Sequelae]
  - Renal cell carcinoma [Recovered/Resolved with Sequelae]
